FAERS Safety Report 8216661-5 (Version None)
Quarter: 2012Q1

REPORT INFORMATION
  Report Type: 
  Country: None (occurrence: None)
  Receive Date: 20120316
  Receipt Date: 20120313
  Transmission Date: 20120608
  Serious: Yes (Hospitalization, Other)
  Sender: FDA-Public Use
  Company Number: DE-ABBOTT-12P-062-0902398-00

PATIENT
  Sex: Male

DRUGS (2)
  1. HUMIRA [Suspect]
  2. HUMIRA [Suspect]
     Indication: CROHN'S DISEASE
     Route: 058
     Dates: start: 20120112, end: 20120125

REACTIONS (4)
  - GASTROINTESTINAL INFLAMMATION [None]
  - INTESTINAL PERFORATION [None]
  - APPENDICITIS [None]
  - INTESTINAL FISTULA [None]
